FAERS Safety Report 4785793-6 (Version None)
Quarter: 2005Q4

REPORT INFORMATION
  Report Type: 
  Country: None (occurrence: None)
  Receive Date: 20051003
  Receipt Date: 20050928
  Transmission Date: 20060501
  Serious: Yes (Hospitalization)
  Sender: FDA-Public Use
  Company Number: US-MERCK-0509USA04394

PATIENT
  Age: 56 Year
  Sex: Male

DRUGS (8)
  1. VIOXX [Suspect]
     Indication: BACK INJURY
     Route: 048
     Dates: start: 19980101, end: 20040101
  2. VIOXX [Suspect]
     Indication: ARTHROPATHY
     Route: 048
     Dates: start: 19980101, end: 20040101
  3. CANDESARTAN CILEXETIL [Concomitant]
     Route: 065
  4. BUSPIRONE HYDROCHLORIDE [Concomitant]
     Route: 065
  5. PYRIDOXINE [Concomitant]
     Route: 065
  6. VERAPAMIL MSD LP [Concomitant]
     Route: 065
  7. BUPROPION HYDROCHLORIDE [Concomitant]
     Route: 065
  8. TRAZODONE HYDROCHLORIDE [Concomitant]
     Route: 065

REACTIONS (7)
  - CARDIAC ARREST [None]
  - COMA [None]
  - DYSLEXIA [None]
  - MEMORY IMPAIRMENT [None]
  - RESPIRATORY ARREST [None]
  - SPEECH DISORDER [None]
  - TREMOR [None]
